FAERS Safety Report 12660193 (Version 1)
Quarter: 2016Q3

REPORT INFORMATION
  Report Type: Spontaneous
  Country: US (occurrence: US)
  Receive Date: 20160817
  Receipt Date: 20160817
  Transmission Date: 20161109
  Serious: Yes (Other)
  Sender: FDA-Public Use
  Company Number: US-FRI-1000084150

PATIENT
  Age: 67 Year
  Sex: Male

DRUGS (8)
  1. VITAMIN E [Concomitant]
     Active Substance: .ALPHA.-TOCOPHEROL
  2. PANTOPRAZOLE [Concomitant]
     Active Substance: PANTOPRAZOLE SODIUM
     Indication: GASTROOESOPHAGEAL REFLUX DISEASE
  3. VITAMIN D [Concomitant]
     Active Substance: CHOLECALCIFEROL
  4. CELEXA [Suspect]
     Active Substance: CITALOPRAM HYDROBROMIDE
     Indication: ANXIETY
     Dosage: 40 MG
     Route: 048
     Dates: start: 201601, end: 20160413
  5. CELEXA [Suspect]
     Active Substance: CITALOPRAM HYDROBROMIDE
     Dosage: 60 MG
     Route: 048
     Dates: start: 20160414
  6. BIOFLEX [Concomitant]
     Active Substance: GLUCOSAMINE SULFATE
  7. B-COMPLEX VITAMIN [Concomitant]
  8. CELEXA [Suspect]
     Active Substance: CITALOPRAM HYDROBROMIDE
     Indication: DEPRESSION
     Dosage: 20 MG
     Route: 048
     Dates: start: 20151008, end: 201601

REACTIONS (15)
  - Fatigue [Recovering/Resolving]
  - Headache [Recovering/Resolving]
  - Feeling abnormal [Recovering/Resolving]
  - Off label use [Not Recovered/Not Resolved]
  - Decreased appetite [Recovered/Resolved]
  - Suicidal ideation [Recovering/Resolving]
  - Depressed mood [Recovering/Resolving]
  - Pain [Recovering/Resolving]
  - Prescribed overdose [Not Recovered/Not Resolved]
  - Weight increased [Recovered/Resolved]
  - Negative thoughts [Recovered/Resolved]
  - Limb discomfort [Recovering/Resolving]
  - Weight decreased [Recovering/Resolving]
  - Anxiety [Recovered/Resolved]
  - Depression [Recovering/Resolving]

NARRATIVE: CASE EVENT DATE: 201510
